FAERS Safety Report 8174303 (Version 5)
Quarter: 2014Q1

REPORT INFORMATION
  Report Type: Spontaneous
  Country: US (occurrence: US)
  Receive Date: 20111010
  Receipt Date: 20140120
  Transmission Date: 20141002
  Serious: Yes (Hospitalization)
  Sender: FDA-Public Use
  Company Number: US-GLAXOSMITHKLINE-A0835762A

PATIENT
  Age: 48 Year
  Sex: Male
  Weight: 73.1 kg

DRUGS (1)
  1. AVANDIA [Suspect]
     Indication: TYPE 2 DIABETES MELLITUS
     Dosage: 4MG TWICE PER DAY
     Route: 048
     Dates: start: 20020628, end: 200803

REACTIONS (1)
  - Myocardial infarction [Not Recovered/Not Resolved]
